FAERS Safety Report 20934991 (Version 1)
Quarter: 2022Q2

REPORT INFORMATION
  Report Type: Spontaneous
  Country: US (occurrence: None)
  Receive Date: 20220608
  Receipt Date: 20220608
  Transmission Date: 20220721
  Serious: No
  Sender: FDA-Public Use
  Company Number: US-ROCHE-2781620

PATIENT
  Age: 57 Year
  Sex: Female

DRUGS (7)
  1. ACTEMRA [Suspect]
     Active Substance: TOCILIZUMAB
     Indication: Rheumatoid arthritis
     Route: 042
  2. FOLIC ACID [Concomitant]
     Active Substance: FOLIC ACID
  3. METHOTREXATE [Concomitant]
     Active Substance: METHOTREXATE
  4. MEDROL [Concomitant]
     Active Substance: METHYLPREDNISOLONE
  5. MELOXICAM [Concomitant]
     Active Substance: MELOXICAM
  6. TYLENOL [Concomitant]
     Active Substance: ACETAMINOPHEN
  7. CODEINE [Concomitant]
     Active Substance: CODEINE

REACTIONS (2)
  - Pain [Not Recovered/Not Resolved]
  - Infection [Recovered/Resolved]

NARRATIVE: CASE EVENT DATE: 20201001
